FAERS Safety Report 4360634-X (Version None)
Quarter: 2004Q2

REPORT INFORMATION
  Report Type: 
  Country: None (occurrence: None)
  Receive Date: 20040519
  Receipt Date: 20040519
  Transmission Date: 20050107
  Serious: Yes (Death)
  Sender: FDA-Public Use
  Company Number: None

PATIENT
  Sex: Female
  Weight: 81 kg

DRUGS (4)
  1. ENOXAPARIN 80 MG AVENTIS [Suspect]
     Indication: DEEP VEIN THROMBOSIS
     Dosage: 70 MG Q12H SUBCUTANEOUS
     Route: 058
     Dates: start: 20040512, end: 20040516
  2. ENOXAPARIN 80 MG AVENTIS [Suspect]
     Indication: PULMONARY EMBOLISM
     Dosage: 70 MG Q12H SUBCUTANEOUS
     Route: 058
     Dates: start: 20040512, end: 20040516
  3. ASPIRIN [Suspect]
     Dosage: 325 MG QDAY ORAL
     Route: 048
  4. DEXAMETHASONE [Concomitant]

REACTIONS (7)
  - BRADYCARDIA [None]
  - CARDIO-RESPIRATORY ARREST [None]
  - DYSPNOEA [None]
  - FLANK PAIN [None]
  - HAEMATOCRIT DECREASED [None]
  - HAEMOGLOBIN DECREASED [None]
  - RESPIRATORY FAILURE [None]
